FAERS Safety Report 10835330 (Version 1)
Quarter: 2015Q1

REPORT INFORMATION
  Report Type: Report from Study
  Country: US (occurrence: US)
  Receive Date: 20150219
  Receipt Date: 20150219
  Transmission Date: 20150721
  Serious: No
  Sender: FDA-Public Use
  Company Number: US-ABBVIE-14P-163-1202971-00

PATIENT
  Age: 22 Year
  Sex: Female

DRUGS (3)
  1. THYROID PILLS [Concomitant]
     Indication: PRODUCT USED FOR UNKNOWN INDICATION
  2. IRON PILLS [Concomitant]
     Active Substance: IRON
     Indication: PRODUCT USED FOR UNKNOWN INDICATION
  3. HUMIRA [Suspect]
     Active Substance: ADALIMUMAB
     Indication: CROHN^S DISEASE
     Dosage: LOADING DOSE
     Dates: start: 20140204

REACTIONS (2)
  - Wrong technique in drug usage process [Recovered/Resolved]
  - Injection site pain [Unknown]

NARRATIVE: CASE EVENT DATE: 20140204
